FAERS Safety Report 21825976 (Version 2)
Quarter: 2023Q1

REPORT INFORMATION
  Report Type: Report from Study
  Country: US (occurrence: US)
  Receive Date: 20230106
  Receipt Date: 20230328
  Transmission Date: 20230418
  Serious: No
  Sender: FDA-Public Use
  Company Number: US-ABBVIE-4230481

PATIENT
  Sex: Male

DRUGS (1)
  1. HUMIRA [Suspect]
     Active Substance: ADALIMUMAB
     Indication: Ankylosing spondylitis
     Dosage: CITRATE FREE, FORM STRENGTH: 40 MILLIGRAM.
     Route: 058
     Dates: start: 20220801

REACTIONS (5)
  - Arthralgia [Not Recovered/Not Resolved]
  - Fluid retention [Unknown]
  - Dysstasia [Unknown]
  - Mobility decreased [Unknown]
  - Pain [Unknown]
